FAERS Safety Report 11403756 (Version 4)
Quarter: 2015Q4

REPORT INFORMATION
  Report Type: Report from Study
  Country: PL (occurrence: PL)
  Receive Date: 20150821
  Receipt Date: 20151005
  Transmission Date: 20160304
  Serious: Yes (Hospitalization, Other)
  Sender: FDA-Public Use
  Company Number: PL-ROCHE-1517126

PATIENT
  Age: 50 Year
  Sex: Male
  Weight: 65 kg

DRUGS (34)
  1. DEXAVEN [Concomitant]
     Active Substance: DEXAMETHASONE
     Route: 042
     Dates: start: 20150211, end: 20150211
  2. CLEMASTINE [Concomitant]
     Active Substance: CLEMASTINE
     Route: 042
     Dates: start: 20150101, end: 20150101
  3. BENDAMUSTINE [Suspect]
     Active Substance: BENDAMUSTINE
     Dosage: C3D2
     Route: 042
     Dates: start: 20150312, end: 20150312
  4. DEXAVEN [Concomitant]
     Active Substance: DEXAMETHASONE
     Indication: PROPHYLAXIS
     Route: 042
     Dates: start: 20141231, end: 20141231
  5. PARACETAMOL [Concomitant]
     Active Substance: ACETAMINOPHEN
     Route: 048
     Dates: start: 20150101, end: 20150101
  6. OBINUTUZUMAB [Suspect]
     Active Substance: OBINUTUZUMAB
     Dosage: C1D2, LAST DOSE PRIOR TO ONSET OF NEUTROPHIL COUNT DECREASED
     Route: 041
     Dates: start: 20150101, end: 20150101
  7. CLEMASTINE [Concomitant]
     Active Substance: CLEMASTINE
     Route: 042
     Dates: start: 20150107, end: 20150107
  8. CLEMASTINE [Concomitant]
     Active Substance: CLEMASTINE
     Route: 042
     Dates: start: 20150311, end: 20150311
  9. PARACETAMOL [Concomitant]
     Active Substance: ACETAMINOPHEN
     Route: 048
     Dates: start: 20150211, end: 20150211
  10. MILURIT [Concomitant]
     Active Substance: ALLOPURINOL
     Route: 048
     Dates: start: 20150217, end: 20150310
  11. BENDAMUSTINE [Suspect]
     Active Substance: BENDAMUSTINE
     Dosage: 150MG, LAST DOSE PRIOR TO ONSET OF BOTH EVENTS. INTERRUPTED IN RESPONSE TO THROMBOCYTOPENIA ON 28/JA
     Route: 042
     Dates: start: 20150101, end: 20150101
  12. BENDAMUSTINE [Suspect]
     Active Substance: BENDAMUSTINE
     Dosage: C2D1. C2D2 SKIPPED DUE TO THROMBOCYTOPENIA.
     Route: 042
     Dates: start: 20150211, end: 20150211
  13. DEXAVEN [Concomitant]
     Active Substance: DEXAMETHASONE
     Route: 042
     Dates: start: 20150311, end: 20150311
  14. PARACETAMOL [Concomitant]
     Active Substance: ACETAMINOPHEN
     Route: 048
     Dates: start: 20150114, end: 20150114
  15. LACIDOFIL [Concomitant]
     Indication: PROPHYLAXIS
     Route: 048
     Dates: start: 20150102, end: 20150107
  16. BENDAMUSTINE [Suspect]
     Active Substance: BENDAMUSTINE
     Indication: CHRONIC LYMPHOCYTIC LEUKAEMIA
     Dosage: 150MG
     Route: 042
     Dates: start: 20141231, end: 20141231
  17. DEXAVEN [Concomitant]
     Active Substance: DEXAMETHASONE
     Route: 042
     Dates: start: 20150114, end: 20150114
  18. PARACETAMOL [Concomitant]
     Active Substance: ACETAMINOPHEN
     Indication: PROPHYLAXIS
     Route: 048
     Dates: start: 20141231, end: 20141231
  19. OBINUTUZUMAB [Suspect]
     Active Substance: OBINUTUZUMAB
     Dosage: C2D1
     Route: 041
     Dates: start: 20150211, end: 20150211
  20. OBINUTUZUMAB [Suspect]
     Active Substance: OBINUTUZUMAB
     Dosage: C3D1
     Route: 041
     Dates: start: 20150311, end: 20150311
  21. CLEMASTINE [Concomitant]
     Active Substance: CLEMASTINE
     Indication: PROPHYLAXIS
     Route: 048
     Dates: start: 20141231, end: 20141231
  22. PARACETAMOL [Concomitant]
     Active Substance: ACETAMINOPHEN
     Route: 048
     Dates: start: 20150107, end: 20150107
  23. MILURIT [Concomitant]
     Active Substance: ALLOPURINOL
     Route: 048
     Dates: start: 20150128, end: 20150208
  24. OBINUTUZUMAB [Suspect]
     Active Substance: OBINUTUZUMAB
     Indication: CHRONIC LYMPHOCYTIC LEUKAEMIA
     Dosage: C1D1
     Route: 041
     Dates: start: 20141231, end: 20141231
  25. OBINUTUZUMAB [Suspect]
     Active Substance: OBINUTUZUMAB
     Dosage: C1D8
     Route: 041
     Dates: start: 20150107, end: 20150107
  26. OBINUTUZUMAB [Suspect]
     Active Substance: OBINUTUZUMAB
     Dosage: C1D15. LAST DOSE PRIOT TO ONSET OF THROMBOCYTOPENIA.?INTERRUPTED ON 28/JAN/2015, IN RESPONSE TO THRO
     Route: 041
     Dates: start: 20150114, end: 20150114
  27. BENDAMUSTINE [Suspect]
     Active Substance: BENDAMUSTINE
     Dosage: C3D1
     Route: 042
     Dates: start: 20150311, end: 20150311
  28. DEXAMETHASONE. [Concomitant]
     Active Substance: DEXAMETHASONE
     Indication: PROPHYLAXIS
     Route: 048
     Dates: start: 20141230, end: 20141230
  29. DEXAVEN [Concomitant]
     Active Substance: DEXAMETHASONE
     Route: 042
     Dates: start: 20150101, end: 20150101
  30. DEXAVEN [Concomitant]
     Active Substance: DEXAMETHASONE
     Route: 042
     Dates: start: 20150107, end: 20150107
  31. CLEMASTINE [Concomitant]
     Active Substance: CLEMASTINE
     Route: 042
     Dates: start: 20150114, end: 20150114
  32. CLEMASTINE [Concomitant]
     Active Substance: CLEMASTINE
     Route: 042
     Dates: start: 20150211, end: 20150211
  33. PARACETAMOL [Concomitant]
     Active Substance: ACETAMINOPHEN
     Route: 048
     Dates: start: 20150311, end: 20150311
  34. MILURIT [Concomitant]
     Active Substance: ALLOPURINOL
     Indication: PROPHYLAXIS
     Route: 048
     Dates: start: 20150103, end: 20150127

REACTIONS (3)
  - Thrombocytopenia [Recovered/Resolved]
  - Neutropenia [Recovered/Resolved]
  - Tumour lysis syndrome [Recovered/Resolved]

NARRATIVE: CASE EVENT DATE: 20141231
